FAERS Safety Report 9066748 (Version 1)
Quarter: 2013Q1

REPORT INFORMATION
  Report Type: Spontaneous
  Country: US (occurrence: US)
  Receive Date: 20130131
  Receipt Date: 20130131
  Transmission Date: 20140127
  Serious: No
  Sender: FDA-Public Use
  Company Number: US-ABBOTT-12P-163-1007667-00

PATIENT
  Age: 48 Year
  Sex: Female
  Weight: 57.2 kg

DRUGS (4)
  1. HUMIRA [Suspect]
     Indication: RHEUMATOID ARTHRITIS
     Route: 058
     Dates: start: 20120815
  2. METHOTREXATE  (NON-ABBOTT) [Concomitant]
     Indication: RHEUMATOID ARTHRITIS
  3. FOLIC ACID [Concomitant]
     Indication: SUPPLEMENTATION THERAPY
  4. PREDNISONE (NON-ABBOTT) [Concomitant]
     Indication: RHEUMATOID ARTHRITIS

REACTIONS (1)
  - Medication error [Recovered/Resolved]
